FAERS Safety Report 5886666-8 (Version None)
Quarter: 2008Q3

REPORT INFORMATION
  Report Type: 
  Country: None (occurrence: None)
  Receive Date: 20080917
  Receipt Date: 20080910
  Transmission Date: 20090109
  Serious: Yes (Other)
  Sender: FDA-Public Use
  Company Number: PHHY2008AR20801

PATIENT
  Sex: Female

DRUGS (2)
  1. DIOVAN [Suspect]
     Indication: HYPERTENSION
     Dosage: 160 MG, QD
     Dates: start: 20070723
  2. MEDOCOR [Concomitant]

REACTIONS (5)
  - BED REST [None]
  - DEEP VEIN THROMBOSIS [None]
  - FALL [None]
  - HAEMATOMA [None]
  - SKIN ULCER [None]
